FAERS Safety Report 10043530 (Version 2)
Quarter: 2014Q2

REPORT INFORMATION
  Report Type: Spontaneous
  Country: US (occurrence: US)
  Receive Date: 20140328
  Receipt Date: 20140509
  Transmission Date: 20141212
  Serious: No
  Sender: FDA-Public Use
  Company Number: US-PFIZER INC-2014088790

PATIENT
  Age: 32 Year
  Sex: Female
  Weight: 62.6 kg

DRUGS (8)
  1. ZOLOFT [Suspect]
     Indication: DEPRESSION
     Dosage: 100 MG, DAILY
     Dates: start: 2013, end: 201403
  2. XANAX [Concomitant]
     Indication: ANXIETY
     Dosage: 1 MG, TWICE A DAY
  3. HYDROCODONE [Concomitant]
     Indication: MUSCULOSKELETAL DISCOMFORT
     Dosage: 25 MG, FOUR TIMES A DAY
  4. HYDROCODONE [Concomitant]
     Indication: BACK DISORDER
  5. IMITREX [Concomitant]
     Indication: MIGRAINE
     Dosage: 50 MG, AS NEEDED
  6. GABAPENTIN [Concomitant]
     Dosage: 800 MG, FOUR TIMES A DAY
  7. CELEBREX [Concomitant]
     Dosage: 200 MG, TWICE A DAY
  8. ZANAFLEX [Concomitant]
     Dosage: 4 MG, THREE TIMES A DAY

REACTIONS (2)
  - Irritability [Not Recovered/Not Resolved]
  - Activities of daily living impaired [Not Recovered/Not Resolved]
